FAERS Safety Report 11226004 (Version 2)
Quarter: 2015Q3

REPORT INFORMATION
  Report Type: Spontaneous
  Country: US (occurrence: US)
  Receive Date: 20150629
  Receipt Date: 20150701
  Transmission Date: 20151125
  Serious: Yes (Other)
  Sender: FDA-Public Use
  Company Number: US-TEVA-573172USA

PATIENT
  Age: 68 Year
  Sex: Female

DRUGS (2)
  1. MIMVEY [Suspect]
     Active Substance: ESTRADIOL\NORETHINDRONE ACETATE
     Indication: MENOPAUSAL SYMPTOMS
  2. MIMVEY [Suspect]
     Active Substance: ESTRADIOL\NORETHINDRONE ACETATE
     Indication: OSTEOPOROSIS POSTMENOPAUSAL
     Route: 065
     Dates: start: 20150618, end: 20150622

REACTIONS (8)
  - Hot flush [Unknown]
  - Drug ineffective [Unknown]
  - Fatigue [Unknown]
  - Mental impairment [Unknown]
  - Skin odour abnormal [Unknown]
  - Depression [Unknown]
  - Irritability [Unknown]
  - Palpitations [Unknown]

NARRATIVE: CASE EVENT DATE: 20150618
